FAERS Safety Report 24836183 (Version 2)
Quarter: 2025Q1

REPORT INFORMATION
  Report Type: Spontaneous
  Country: IE (occurrence: IE)
  Receive Date: 20250113
  Receipt Date: 20250218
  Transmission Date: 20250408
  Serious: Yes (Other)
  Sender: ROCHE
  Company Number: IE-ROCHE-10000174379

PATIENT
  Age: 50 Year
  Sex: Female

DRUGS (1)
  1. MOSUNETUZUMAB [Suspect]
     Active Substance: MOSUNETUZUMAB
     Indication: Product used for unknown indication
     Route: 065
     Dates: start: 20241206

REACTIONS (2)
  - Therapy partial responder [Unknown]
  - Disease progression [Unknown]
